FAERS Safety Report 7691396-6 (Version None)
Quarter: 2011Q3

REPORT INFORMATION
  Report Type: 
  Country: None (occurrence: None)
  Receive Date: 20110818
  Receipt Date: 20110808
  Transmission Date: 20111222
  Serious: Yes (Other)
  Sender: FDA-Public Use
  Company Number: PHHY2011US48530

PATIENT
  Sex: Male
  Weight: 136.5 kg

DRUGS (28)
  1. AVODART [Concomitant]
     Dosage: 0.5 MG, UNK
  2. GILENYA [Suspect]
     Indication: RELAPSING-REMITTING MULTIPLE SCLEROSIS
     Dosage: 0.5 MG, QD
     Route: 048
     Dates: start: 20110411, end: 20110425
  3. GILENYA [Suspect]
     Dosage: 0.5 MG, QD
     Route: 048
     Dates: start: 20110504, end: 20110518
  4. FAMPRIDINE [Concomitant]
     Indication: MULTIPLE SCLEROSIS
     Dosage: UNK UKN, UNK
     Route: 048
  5. ZANAFLEX [Concomitant]
     Dosage: 4 MG, QID
     Route: 048
  6. CRESTOR [Concomitant]
     Dosage: 20 MG, QHS
  7. VITAMIN B COMPLEX CAP [Concomitant]
     Dosage: UNK UKN, UNK
  8. DEXAMETHASONE [Concomitant]
     Dosage: 1 DF, QD
     Route: 048
  9. METFORMIN [Concomitant]
     Dosage: 1000 MG, UNK
     Route: 048
  10. GLIPIZIDE [Concomitant]
     Dosage: UNK UKN, UNK
  11. BUMEX [Concomitant]
     Dosage: UNK DF, UNK
  12. LOVAZA [Concomitant]
     Dosage: UNK UKN, UNK
  13. DEPLIN [Concomitant]
     Dosage: UNK UKN, UNK
  14. METFORMIN [Concomitant]
     Dosage: 1 DF, BID
  15. FOSAMAX [Concomitant]
     Dosage: UNK UKN, UNK
  16. VITAMIN D [Concomitant]
     Dosage: 1 DF, BID
  17. ALBUTEROL SULFATE AUTOHALER [Concomitant]
     Dosage: 90 UG, PRN
  18. WELLBUTRIN XL [Concomitant]
     Dosage: 1 DF, QD
  19. LEVOTHYROXINE SODIUM [Concomitant]
     Dosage: 1 DF, QID
  20. LORATADINE [Concomitant]
     Dosage: 1 DF, QD
  21. NEURONTIN [Concomitant]
     Dosage: 300 MG, BID
  22. BACLOFEN [Concomitant]
     Dosage: 2 DF, QID
     Route: 048
  23. PROTONIX [Concomitant]
     Dosage: 1 DF, QD
     Route: 048
  24. POTASSIUM [Concomitant]
     Dosage: 1 DF, QID
  25. COUMADIN [Concomitant]
     Dosage: UNK UKN, UNK
     Route: 048
  26. ASCORBIC ACID [Concomitant]
     Dosage: 2 DF, QD
  27. NUVIGIL [Concomitant]
     Dosage: UNK UKN, UNK
  28. REBIF [Concomitant]
     Dosage: UNK UKN, UNK

REACTIONS (7)
  - VISION BLURRED [None]
  - VITREOUS FLOATERS [None]
  - LACRIMATION INCREASED [None]
  - EYE PAIN [None]
  - CATARACT [None]
  - VISUAL IMPAIRMENT [None]
  - MALAISE [None]
